FAERS Safety Report 24997254 (Version 1)
Quarter: 2025Q1

REPORT INFORMATION
  Report Type: Spontaneous
  Country: CN (occurrence: CN)
  Receive Date: 20250221
  Receipt Date: 20250221
  Transmission Date: 20250409
  Serious: Yes (Hospitalization, Other)
  Sender: ABBVIE
  Company Number: CN-PFIZER INC-PV202500018638

PATIENT
  Age: 80 Year
  Sex: Male

DRUGS (3)
  1. AVIBACTAM SODIUM\CEFTAZIDIME [Suspect]
     Active Substance: AVIBACTAM SODIUM\CEFTAZIDIME
     Indication: Symptomatic treatment
     Route: 041
     Dates: start: 20241207, end: 20241210
  2. VANCOMYCIN HYDROCHLORIDE [Suspect]
     Active Substance: VANCOMYCIN HYDROCHLORIDE
     Indication: Symptomatic treatment
     Dosage: 0.5 G, TWICE A DAY
     Route: 041
     Dates: start: 20241207, end: 20241209
  3. HERBALS [Suspect]
     Active Substance: HERBALS
     Indication: Symptomatic treatment
     Route: 041
     Dates: start: 20241207, end: 20241208

REACTIONS (1)
  - Platelet count decreased [Unknown]

NARRATIVE: CASE EVENT DATE: 20241208
